FAERS Safety Report 9433866 (Version 2)
Quarter: 2013Q3

REPORT INFORMATION
  Report Type: Spontaneous
  Country: BR (occurrence: BR)
  Receive Date: 20130731
  Receipt Date: 20130830
  Transmission Date: 20140515
  Serious: Yes (Other)
  Sender: FDA-Public Use
  Company Number: BR-ASTRAZENECA-2013SE56029

PATIENT
  Age: 2568 Week
  Sex: Male
  Weight: 90 kg

DRUGS (8)
  1. ATACAND [Suspect]
     Indication: HYPERTENSION
     Route: 048
     Dates: start: 2011, end: 201307
  2. ETNA [Concomitant]
     Indication: INTERVERTEBRAL DISC PROTRUSION
     Dosage: UP TO 2 ADDITIONAL TABLETS AS REQUIRED
     Dates: start: 2008
  3. ETNA [Concomitant]
     Indication: INTERVERTEBRAL DISC PROTRUSION
     Dates: start: 2008
  4. CARDIZEM SR [Concomitant]
     Indication: ARRHYTHMIA
     Dates: start: 2010
  5. CITALOPRAM [Concomitant]
     Indication: NERVOUSNESS
     Dates: start: 2011
  6. ARAVA [Concomitant]
     Indication: ARTHRITIS
     Dosage: UNKNOWN DOSE DAILY
     Dates: start: 2003
  7. HUMIRA [Concomitant]
     Indication: ARTHRITIS
     Dates: start: 2008
  8. PANTOPRAZOLE [Concomitant]
     Indication: ABDOMINAL DISCOMFORT
     Dates: start: 1998

REACTIONS (2)
  - Blood pressure increased [Recovered/Resolved]
  - Drug effect decreased [Unknown]
